FAERS Safety Report 4892512-1 (Version None)
Quarter: 2006Q1

REPORT INFORMATION
  Report Type: 
  Country: None (occurrence: None)
  Receive Date: 20060126
  Receipt Date: 20060113
  Transmission Date: 20060701
  Serious: Yes (Death)
  Sender: FDA-Public Use
  Company Number: DE-BRISTOL-MYERS SQUIBB COMPANY-13247093

PATIENT
  Age: 56 Year
  Sex: Female

DRUGS (2)
  1. CISPLATIN [Suspect]
     Indication: SMALL CELL LUNG CANCER STAGE UNSPECIFIED
     Dosage: STARTED THE DRUG ON 28-OCT-05
     Route: 042
     Dates: start: 20051209, end: 20051209
  2. ETOPOSIDE [Suspect]
     Indication: SMALL CELL LUNG CANCER STAGE UNSPECIFIED
     Dosage: STARTED ON 28-OCT-05.
     Route: 042
     Dates: start: 20051209, end: 20051211

REACTIONS (1)
  - SEPTIC SHOCK [None]
